FAERS Safety Report 5028121-3 (Version None)
Quarter: 2006Q2

REPORT INFORMATION
  Report Type: 
  Country: None (occurrence: None)
  Receive Date: 20060609
  Receipt Date: 20060524
  Transmission Date: 20061013
  Serious: Yes (Hospitalization)
  Sender: FDA-Public Use
  Company Number: 8010903

PATIENT
  Age: 20 Year
  Sex: Female
  Weight: 56.8 kg

DRUGS (5)
  1. KEPPRA [Suspect]
     Indication: CONVULSION
     Dosage: 1250 MG PO
     Route: 048
     Dates: start: 20000601, end: 20041101
  2. KEPPRA [Suspect]
     Indication: CONVULSION
     Dosage: 1250 MG 2/D PO
     Route: 048
     Dates: start: 20041102, end: 20060528
  3. KEPPRA [Suspect]
     Indication: CONVULSION
     Dosage: PO
     Route: 048
     Dates: start: 20060528
  4. PRIMACARE [Concomitant]
  5. HYDROCODONE [Concomitant]

REACTIONS (12)
  - ABORTION SPONTANEOUS [None]
  - CONDITION AGGRAVATED [None]
  - CONVULSION [None]
  - DRUG EXPOSURE DURING PREGNANCY [None]
  - FATIGUE [None]
  - HEADACHE [None]
  - INSOMNIA [None]
  - KIDNEY INFECTION [None]
  - NAUSEA [None]
  - NUTRITIONAL CONDITION ABNORMAL [None]
  - PREGNANCY [None]
  - PULMONARY OEDEMA [None]
